FAERS Safety Report 7356317-4 (Version None)
Quarter: 2011Q1

REPORT INFORMATION
  Report Type: 
  Country: None (occurrence: None)
  Receive Date: 20110308
  Receipt Date: 20110221
  Transmission Date: 20110831
  Serious: Yes (Other)
  Sender: FDA-Public Use
  Company Number: 2011S1000222

PATIENT
  Age: 60 Year
  Sex: Female

DRUGS (3)
  1. ALOSENN /00476901/ (ALOSENN /00476901/) [Suspect]
     Indication: CONSTIPATION
     Dosage: 0.5 GM;BID;PO
     Route: 048
  2. LIVALO [Suspect]
     Indication: HYPERCHOLESTEROLAEMIA
     Dosage: 2 MG;1X;PO ;  2MG;1X;PO
     Route: 048
     Dates: end: 20110201
  3. ZETIA [Suspect]
     Indication: HYPERCHOLESTEROLAEMIA
     Dosage: 10 MG;1X;PO ; 10 MG;1X;PO
     Route: 048
     Dates: end: 20110201

REACTIONS (3)
  - CONSTIPATION [None]
  - PURPURA [None]
  - PLATELET COUNT DECREASED [None]
